FAERS Safety Report 16143863 (Version 2)
Quarter: 2019Q2

REPORT INFORMATION
  Report Type: Spontaneous
  Country: US (occurrence: US)
  Receive Date: 20190401
  Receipt Date: 20190402
  Transmission Date: 20190711
  Serious: Yes (Other)
  Sender: FDA-Public Use
  Company Number: US-PFIZER INC-2019126159

PATIENT
  Age: 62 Year
  Sex: Male
  Weight: 65.77 kg

DRUGS (6)
  1. LYRICA [Suspect]
     Active Substance: PREGABALIN
     Indication: NEUROMYOTONIA
     Dosage: 100 MG, TWICE A DAY
     Route: 048
  2. CARBAMAZEPINE. [Concomitant]
     Active Substance: CARBAMAZEPINE
     Dosage: 200 MG, TWICE A DAY
  3. TRAMADOL HCL [Concomitant]
     Active Substance: TRAMADOL HYDROCHLORIDE
     Dosage: 50 MG, TWICE A DAY
  4. LEVOTHYROXINE. [Concomitant]
     Active Substance: LEVOTHYROXINE
     Indication: THYROID DISORDER
     Dosage: 100 MCG, ONCE A DAY
  5. LYRICA [Suspect]
     Active Substance: PREGABALIN
     Indication: FIBROMYALGIA
     Dosage: 75 MG, TWICE A DAY
     Route: 048
     Dates: end: 20190322
  6. BACLOFEN. [Concomitant]
     Active Substance: BACLOFEN
     Dosage: 10 MG, TWICE A DAY

REACTIONS (9)
  - Hernia [Not Recovered/Not Resolved]
  - Somnolence [Unknown]
  - Musculoskeletal discomfort [Not Recovered/Not Resolved]
  - Fall [Unknown]
  - Body height decreased [Not Recovered/Not Resolved]
  - Fatigue [Unknown]
  - Patella fracture [Not Recovered/Not Resolved]
  - Diarrhoea [Unknown]
  - Pain [Recovered/Resolved]

NARRATIVE: CASE EVENT DATE: 2016
